FAERS Safety Report 7983431-2 (Version None)
Quarter: 2011Q4

REPORT INFORMATION
  Report Type: 
  Country: None (occurrence: None)
  Receive Date: 20111215
  Receipt Date: 20111207
  Transmission Date: 20120403
  Serious: Yes (Other)
  Sender: FDA-Public Use
  Company Number: US-ABBOTT-11P-163-0881954-00

PATIENT
  Age: 59 Year
  Sex: Male

DRUGS (12)
  1. ADVAIR DISKUS 100/50 [Concomitant]
     Indication: PRODUCT USED FOR UNKNOWN INDICATION
     Dosage: 250-50 BID
  2. NEURONTIN [Concomitant]
     Indication: MOVEMENT DISORDER
  3. AMLODIPINE BESYLATE [Concomitant]
     Indication: PRODUCT USED FOR UNKNOWN INDICATION
  4. FLUTICASONE PROPIONATE [Concomitant]
     Indication: PRODUCT USED FOR UNKNOWN INDICATION
     Route: 045
  5. MELOXICAM [Concomitant]
     Indication: INFLAMMATION
  6. HUMIRA [Suspect]
     Indication: PSORIASIS
  7. VENTOLIN HFA [Concomitant]
     Indication: BRONCHOSPASM
  8. OMPERAZOLE DR [Concomitant]
     Indication: ANTACID THERAPY
  9. OMPERAZOLE DR [Concomitant]
     Indication: GASTROOESOPHAGEAL REFLUX DISEASE
  10. LOSARTAN POTASSIUM [Concomitant]
     Indication: BLOOD PRESSURE
  11. TAMSULOSIN HCL [Concomitant]
     Indication: PRODUCT USED FOR UNKNOWN INDICATION
  12. HYDROCHLOROTHIAZIDE [Concomitant]
     Indication: BLOOD PRESSURE

REACTIONS (10)
  - KNEE ARTHROPLASTY [None]
  - ROAD TRAFFIC ACCIDENT [None]
  - SINUS DISORDER [None]
  - HYPOAESTHESIA [None]
  - EXOSTOSIS [None]
  - DYSPNOEA [None]
  - PARAESTHESIA [None]
  - BLOOD IRON DECREASED [None]
  - ROTATOR CUFF SYNDROME [None]
  - NASAL SEPTUM DEVIATION [None]
